FAERS Safety Report 8842042 (Version 1)
Quarter: 2012Q4

REPORT INFORMATION
  Report Type: 
  Country: BR (occurrence: BR)
  Receive Date: 20121016
  Receipt Date: 20121016
  Transmission Date: 20130627
  Serious: Yes (Other)
  Sender: FDA-Public Use
  Company Number: BR-SANOFI-AVENTIS-2012SA074821

PATIENT
  Age: 54 Year
  Sex: Female
  Weight: 68 kg

DRUGS (5)
  1. LANTUS [Suspect]
     Indication: TYPE I DIABETES MELLITUS
     Route: 058
     Dates: start: 2002
  2. AAS [Concomitant]
     Dosage: frequency: QAM and HS
  3. ATENOLOL [Concomitant]
     Dosage: frequency: QAM and HS
  4. LOSARTAN [Concomitant]
  5. METFORMIN [Concomitant]

REACTIONS (6)
  - Blindness [Not Recovered/Not Resolved]
  - Glaucoma [Not Recovered/Not Resolved]
  - Visual acuity reduced [Not Recovered/Not Resolved]
  - Arrhythmia [Not Recovered/Not Resolved]
  - Fatigue [Not Recovered/Not Resolved]
  - Blood pressure increased [Not Recovered/Not Resolved]
